FAERS Safety Report 24220588 (Version 2)
Quarter: 2025Q1

REPORT INFORMATION
  Report Type: Spontaneous
  Country: CA (occurrence: CA)
  Receive Date: 20240818
  Receipt Date: 20250127
  Transmission Date: 20250409
  Serious: Yes (Other)
  Sender: BOEHRINGER INGELHEIM
  Company Number: CA-BoehringerIngelheim-2024-BI-045832

PATIENT
  Age: 65 Year
  Sex: Female

DRUGS (20)
  1. PRAMIPEXOLE [Suspect]
     Active Substance: PRAMIPEXOLE
     Indication: Major depression
  2. BUPROPION [Suspect]
     Active Substance: BUPROPION
     Indication: Major depression
  3. BUPROPION [Suspect]
     Active Substance: BUPROPION
  4. VORTIOXETINE [Suspect]
     Active Substance: VORTIOXETINE
     Indication: Major depression
  5. LEMBOREXANT [Suspect]
     Active Substance: LEMBOREXANT
     Indication: Insomnia
  6. LEMBOREXANT [Suspect]
     Active Substance: LEMBOREXANT
     Indication: Major depression
  7. VENLAFAXINE HYDROCHLORIDE [Suspect]
     Active Substance: VENLAFAXINE HYDROCHLORIDE
     Indication: Major depression
  8. LORAZEPAM [Suspect]
     Active Substance: LORAZEPAM
     Indication: Major depression
  9. ZOLPIDEM [Suspect]
     Active Substance: ZOLPIDEM TARTRATE
     Indication: Major depression
  10. PANTOPRAZOLE SODIUM [Concomitant]
     Active Substance: PANTOPRAZOLE SODIUM
     Indication: Gastrooesophageal reflux disease
  11. LAMOTRIGINE [Concomitant]
     Active Substance: LAMOTRIGINE
     Indication: Major depression
  12. LAMOTRIGINE [Concomitant]
     Active Substance: LAMOTRIGINE
  13. LURASIDONE HYDROCHLORIDE [Concomitant]
     Active Substance: LURASIDONE HYDROCHLORIDE
     Indication: Depression
  14. LURASIDONE HYDROCHLORIDE [Concomitant]
     Active Substance: LURASIDONE HYDROCHLORIDE
  15. APIXABAN [Concomitant]
     Active Substance: APIXABAN
     Indication: Anticoagulant therapy
  16. APIXABAN [Concomitant]
     Active Substance: APIXABAN
     Indication: Deep vein thrombosis
  17. BREXPIPRAZOLE [Concomitant]
     Active Substance: BREXPIPRAZOLE
     Indication: Major depression
  18. MOCLOBEMIDE [Concomitant]
     Active Substance: MOCLOBEMIDE
     Indication: Depression
  19. MOCLOBEMIDE [Concomitant]
     Active Substance: MOCLOBEMIDE
  20. MOCLOBEMIDE [Concomitant]
     Active Substance: MOCLOBEMIDE

REACTIONS (1)
  - Therapy non-responder [Unknown]
